FAERS Safety Report 15562098 (Version 1)
Quarter: 2018Q4

REPORT INFORMATION
  Report Type: Spontaneous
  Country: US (occurrence: US)
  Receive Date: 20181029
  Receipt Date: 20181029
  Transmission Date: 20190205
  Serious: No
  Sender: FDA-Public Use
  Company Number: US-ALKERMES INC.-ALK-2018-005832

PATIENT
  Age: 35 Year
  Sex: Male

DRUGS (1)
  1. VIVITROL [Suspect]
     Active Substance: NALTREXONE
     Indication: DRUG USE DISORDER
     Dosage: 380 MG, Q27D
     Route: 030
     Dates: start: 20160917

REACTIONS (10)
  - Inappropriate schedule of product administration [Unknown]
  - Anger [Unknown]
  - Irritability [Unknown]
  - Decreased appetite [Unknown]
  - Eating disorder [Unknown]
  - Panic attack [Unknown]
  - Depressed mood [Unknown]
  - Anxiety [Unknown]
  - Weight decreased [Unknown]
  - Mood altered [Unknown]

NARRATIVE: CASE EVENT DATE: 2018
